FAERS Safety Report 13836880 (Version 1)
Quarter: 2017Q3

REPORT INFORMATION
  Report Type: Spontaneous
  Country: US (occurrence: US)
  Receive Date: 20170804
  Receipt Date: 20170804
  Transmission Date: 20171127
  Serious: No
  Sender: FDA-Public Use
  Company Number: US-ROCHE-1214632

PATIENT
  Sex: Female
  Weight: 70 kg

DRUGS (3)
  1. BONIVA [Suspect]
     Active Substance: IBANDRONATE SODIUM
     Indication: OSTEOPOROSIS
     Dosage: 1 TABLET
     Route: 048
     Dates: start: 2010, end: 20130127
  2. IBANDRONATE [Suspect]
     Active Substance: IBANDRONATE SODIUM
     Dosage: 1 TABLET
     Route: 048
     Dates: start: 20130228, end: 20130228
  3. IBANDRONATE [Suspect]
     Active Substance: IBANDRONATE SODIUM
     Indication: OSTEOPOROSIS
     Dosage: 1 TABLET
     Route: 048
     Dates: start: 20130128, end: 20130227

REACTIONS (2)
  - Nausea [Recovered/Resolved]
  - Back pain [Not Recovered/Not Resolved]
